FAERS Safety Report 19392851 (Version 3)
Quarter: 2021Q3

REPORT INFORMATION
  Report Type: Spontaneous
  Country: JP (occurrence: JP)
  Receive Date: 20210609
  Receipt Date: 20210708
  Transmission Date: 20211014
  Serious: Yes (Hospitalization, Other)
  Sender: FDA-Public Use
  Company Number: JP-ACCORD-227698

PATIENT
  Age: 61 Year
  Sex: Male
  Weight: 55 kg

DRUGS (9)
  1. VINCRISTINE [Suspect]
     Active Substance: VINCRISTINE
     Indication: DIFFUSE LARGE B-CELL LYMPHOMA
     Dosage: EVERY 3 WEEKS FOR EIGHT CYCLES
     Route: 041
  2. ETOPOSIDE. [Suspect]
     Active Substance: ETOPOSIDE
     Indication: DIFFUSE LARGE B-CELL LYMPHOMA
     Dosage: EVERY 4 WEEKS FOR THREE CYCLES
     Route: 041
  3. RITUXIMAB. [Suspect]
     Active Substance: RITUXIMAB
     Indication: DIFFUSE LARGE B-CELL LYMPHOMA
     Dosage: EVERY 3 WEEKS FOR EIGHT CYCLES
  4. CARBOPLATIN. [Suspect]
     Active Substance: CARBOPLATIN
     Indication: DIFFUSE LARGE B-CELL LYMPHOMA
     Dosage: EVERY 4 WEEKS FOR THREE CYCLES
     Route: 041
  5. CYCLOPHOSPHAMIDE/CYCLOPHOSPHAMIDE MONOHYDRATE [Suspect]
     Active Substance: CYCLOPHOSPHAMIDE
     Indication: DIFFUSE LARGE B-CELL LYMPHOMA
     Dosage: EVERY 3 WEEKS FOR EIGHT CYCLES
     Route: 041
  6. DEXAMETHASONE. [Suspect]
     Active Substance: DEXAMETHASONE
     Indication: DIFFUSE LARGE B-CELL LYMPHOMA
     Dosage: EVERY 4  WEEKS FOR THREE CYCLES
     Route: 041
  7. PIRARUBICIN [Suspect]
     Active Substance: PIRARUBICIN
     Indication: DIFFUSE LARGE B-CELL LYMPHOMA
     Dosage: TETRAHYDROPYRANYLADRIAMYCIN (PIRARUBICIN, THP: TOTAL 400 MG/M2?EVERY 3 WEEKS FOR EIGHT CYCLES.
     Route: 041
  8. PREDNISOLONE. [Suspect]
     Active Substance: PREDNISOLONE
     Indication: DIFFUSE LARGE B-CELL LYMPHOMA
     Dosage: EVERY 3 WEEKS FOR EIGHT CYCLES
     Route: 041
  9. IFOSFAMIDE. [Suspect]
     Active Substance: IFOSFAMIDE
     Indication: DIFFUSE LARGE B-CELL LYMPHOMA
     Dosage: 3.4 G/M2?EVERY 4  WEEKS FOR THREE CYCLES
     Route: 041

REACTIONS (7)
  - Blood bilirubin increased [Recovering/Resolving]
  - Cardiac dysfunction [Recovered/Resolved]
  - Aspartate aminotransferase increased [Recovering/Resolving]
  - Blood urea increased [Recovering/Resolving]
  - Alanine aminotransferase increased [Recovering/Resolving]
  - Cardiac failure [Recovering/Resolving]
  - Blood creatinine increased [Recovering/Resolving]
